FAERS Safety Report 9447402 (Version 2)
Quarter: 2013Q3

REPORT INFORMATION
  Report Type: Spontaneous
  Country: JP (occurrence: JP)
  Receive Date: 20130808
  Receipt Date: 20130916
  Transmission Date: 20140515
  Serious: Yes (Hospitalization)
  Sender: FDA-Public Use
  Company Number: JP-ROCHE-1259336

PATIENT
  Age: 57 Year
  Sex: Female
  Weight: 46 kg

DRUGS (10)
  1. AVASTIN [Suspect]
     Indication: NON-SMALL CELL LUNG CANCER RECURRENT
     Route: 041
     Dates: start: 20120515, end: 20121204
  2. AVASTIN [Suspect]
     Indication: NON-SMALL CELL LUNG CANCER RECURRENT
     Route: 041
     Dates: start: 20130108, end: 20130718
  3. PACLITAXEL [Concomitant]
     Indication: NON-SMALL CELL LUNG CANCER RECURRENT
     Route: 041
     Dates: start: 20120424, end: 20121204
  4. CARBOPLATIN [Concomitant]
     Indication: NON-SMALL CELL LUNG CANCER RECURRENT
     Route: 041
     Dates: start: 20120424, end: 20121204
  5. GEMZAR [Concomitant]
     Indication: NON-SMALL CELL LUNG CANCER RECURRENT
     Route: 041
     Dates: start: 20130108, end: 20130718
  6. TRAMCET [Concomitant]
     Route: 048
     Dates: start: 20120319
  7. JUVELA [Concomitant]
     Route: 048
     Dates: start: 20120410
  8. TRANSAMIN [Concomitant]
     Route: 048
     Dates: start: 20120410, end: 20120807
  9. LYRICA [Concomitant]
     Route: 048
     Dates: start: 20120723
  10. AVASTIN [Suspect]
     Indication: NON-SMALL CELL LUNG CANCER
     Dosage: DOSAGE IS UNCERTAIN.
     Route: 041
     Dates: start: 20120424, end: 20120424

REACTIONS (2)
  - Haemothorax [Recovering/Resolving]
  - Pneumothorax [Recovered/Resolved]
